FAERS Safety Report 4276356-X (Version None)
Quarter: 2004Q1

REPORT INFORMATION
  Report Type: 
  Country: None (occurrence: None)
  Receive Date: 20040120
  Receipt Date: 20040108
  Transmission Date: 20041129
  Serious: Yes (Other)
  Sender: FDA-Public Use
  Company Number: A0492126A

PATIENT
  Age: 47 Year
  Sex: Female

DRUGS (5)
  1. ABREVA [Suspect]
     Indication: HERPES SIMPLEX
     Dosage: TOPICAL
     Route: 061
     Dates: start: 20031231, end: 20031231
  2. ALLEGRA-D [Concomitant]
  3. FLUTICASONE+SALMETEROL [Concomitant]
  4. MONTELUKAST SODIUM [Concomitant]
  5. METHYLPREDNISOLONE [Concomitant]

REACTIONS (4)
  - DRUG HYPERSENSITIVITY [None]
  - DYSPNOEA [None]
  - RASH [None]
  - THROAT TIGHTNESS [None]
